FAERS Safety Report 10179311 (Version 2)
Quarter: 2014Q2

REPORT INFORMATION
  Report Type: Report from Study
  Country: GR (occurrence: GR)
  Receive Date: 20140519
  Receipt Date: 20140519
  Transmission Date: 20141212
  Serious: Yes (Death)
  Sender: FDA-Public Use
  Company Number: PHHY2014GR051880

PATIENT
  Age: 66 Year
  Sex: Female
  Weight: 123 kg

DRUGS (7)
  1. AFINITOR [Suspect]
     Dosage: 10 MG, QD
     Route: 048
     Dates: start: 20140415
  2. NORVASC [Concomitant]
     Dosage: UNK UKN, BID
  3. PLAVIX [Concomitant]
     Dosage: UNK UKN, QD
  4. SPIRIVA [Concomitant]
     Dosage: UNK UKN, BID
  5. CARVEPEN [Concomitant]
     Dosage: UNK UKN, BID
  6. OLARTAN [Concomitant]
     Dosage: UNK UKN, QD
  7. T4 [Concomitant]
     Dosage: UNK UKN, QD

REACTIONS (9)
  - Death [Fatal]
  - Mucosal inflammation [Unknown]
  - Cough [Not Recovered/Not Resolved]
  - Peripheral swelling [Not Recovered/Not Resolved]
  - Aphthous stomatitis [Not Recovered/Not Resolved]
  - Dysphagia [Unknown]
  - Tongue ulceration [Unknown]
  - Dry mouth [Unknown]
  - Lip ulceration [Unknown]
